FAERS Safety Report 4323378-6 (Version None)
Quarter: 2004Q1

REPORT INFORMATION
  Report Type: 
  Country: None (occurrence: None)
  Receive Date: 20040324
  Receipt Date: 20040324
  Transmission Date: 20041129
  Serious: Yes (Hospitalization)
  Sender: FDA-Public Use
  Company Number: None

PATIENT
  Sex: Female
  Weight: 51.7101 kg

DRUGS (2)
  1. TOPOTECAN 0.6 MG/M2 [Suspect]
     Dosage: 0.89 MG QD X 5 , IV
     Route: 042
     Dates: start: 20040301, end: 20040305
  2. CISPLATIN [Suspect]
     Dosage: 74 MG, DAY 5, IV
     Route: 042
     Dates: start: 20040305

REACTIONS (3)
  - FATIGUE [None]
  - HYPONATRAEMIA [None]
  - RENAL FAILURE [None]
